FAERS Safety Report 5475401-3 (Version None)
Quarter: 2007Q4

REPORT INFORMATION
  Report Type: 
  Country: None (occurrence: None)
  Receive Date: 20071003
  Receipt Date: 20070927
  Transmission Date: 20080405
  Serious: Yes (Death, Other)
  Sender: FDA-Public Use
  Company Number: PHBS2007JP15381

PATIENT
  Age: 25 Year
  Sex: Male

DRUGS (2)
  1. RITALIN [Suspect]
     Indication: DEPRESSION
     Dates: end: 20050101
  2. RITALIN [Suspect]
     Dosage: 80 MG, ONCE/SINGLE
     Dates: start: 20050101, end: 20050101

REACTIONS (8)
  - AGGRESSION [None]
  - COMPLETED SUICIDE [None]
  - DELUSION [None]
  - DRUG ABUSER [None]
  - DRUG DEPENDENCE [None]
  - FATIGUE [None]
  - INSOMNIA [None]
  - INTENTIONAL OVERDOSE [None]
